FAERS Safety Report 5410816-0 (Version None)
Quarter: 2007Q3

REPORT INFORMATION
  Report Type: 
  Country: None (occurrence: None)
  Receive Date: 20070810
  Receipt Date: 20070808
  Transmission Date: 20080115
  Serious: Yes (Hospitalization)
  Sender: FDA-Public Use
  Company Number: PHBS2007SE13264

PATIENT
  Age: 77 Year
  Sex: Male

DRUGS (3)
  1. DEFERIPRONE [Concomitant]
     Dates: start: 20050501
  2. BLOOD TRANSFUSION, AUXILIARY PRODUCTS [Concomitant]
  3. DESFERAL [Suspect]
     Indication: IRON OVERLOAD
     Dosage: 6 G, Q48H
     Dates: start: 20031201, end: 20070301

REACTIONS (2)
  - CATHETER RELATED INFECTION [None]
  - DRUG EFFECT DECREASED [None]
